FAERS Safety Report 4576540-1 (Version None)
Quarter: 2005Q1

REPORT INFORMATION
  Report Type: 
  Country: None (occurrence: None)
  Receive Date: 20050119
  Receipt Date: 20040317
  Transmission Date: 20050727
  Serious: Yes (Hospitalization)
  Sender: FDA-Public Use
  Company Number: A03200400836

PATIENT
  Age: 64 Year
  Sex: Male

DRUGS (11)
  1. PLAVIX [Suspect]
     Indication: ATHEROSCLEROSIS
     Dosage: 75 MG QD  - ORAL
     Route: 048
  2. ANGIOMAX [Suspect]
     Indication: ANTICOAGULANT THERAPY
     Dosage: 70 MG BOLUS, 101.75 MG INFUSION - INTRAVENOUS NOS
     Route: 042
     Dates: start: 20030904, end: 20030904
  3. CELEBREX [Suspect]
     Indication: OSTEOARTHRITIS
     Dosage: 200 MG BID - ORAL
     Route: 048
  4. METOPROLOL SUCCINATE [Concomitant]
  5. VALSARTAN + HYDROCHLOROTHIAZIDE [Concomitant]
  6. SERENOA REPENS [Concomitant]
  7. TRAMADOL HYDROCHLORIDE/ACETAMINOPHEN [Concomitant]
  8. ACETAMINOPHEN + DIPHENHYDRAMINE HYDROCHLORIDE [Concomitant]
  9. MULTI-VITAMIN [Concomitant]
  10. NITROGLYCERIN [Concomitant]
  11. ROSUVASTATIN CALCIUM [Concomitant]

REACTIONS (4)
  - DRUG INTERACTION [None]
  - GASTRIC ULCER HAEMORRHAGE [None]
  - HAEMOGLOBIN DECREASED [None]
  - SYNCOPE [None]
